FAERS Safety Report 5162646-5 (Version None)
Quarter: 2006Q4

REPORT INFORMATION
  Report Type: 
  Country: None (occurrence: None)
  Receive Date: 20061201
  Receipt Date: 20020620
  Transmission Date: 20070319
  Serious: Yes (Other)
  Sender: FDA-Public Use
  Company Number: PHFR2002GB02011

PATIENT
  Age: 22 Year
  Sex: Female

DRUGS (2)
  1. LUSTRAL [Suspect]
     Indication: DEPRESSED MOOD
     Route: 048
     Dates: start: 20020601
  2. CLOZARIL [Suspect]
     Indication: SCHIZOPHRENIA
     Dosage: 125MG AM; 175MG PM
     Route: 048
     Dates: start: 20020122, end: 20020801

REACTIONS (3)
  - PETECHIAE [None]
  - SKIN STRIAE [None]
  - WEIGHT INCREASED [None]
